FAERS Safety Report 9689400 (Version 1)
Quarter: 2013Q4

REPORT INFORMATION
  Report Type: Report from Study
  Country: TR (occurrence: TR)
  Receive Date: 20131114
  Receipt Date: 20131114
  Transmission Date: 20140711
  Serious: Yes (Hospitalization)
  Sender: FDA-Public Use
  Company Number: TR-US-EMD SERONO, INC.-7248779

PATIENT
  Age: 19 Year
  Sex: Female
  Weight: 60 kg

DRUGS (2)
  1. REBIF [Suspect]
     Indication: MULTIPLE SCLEROSIS
     Route: 058
     Dates: start: 20130902, end: 20131001
  2. BRUFEN /00109201/ [Suspect]
     Indication: ANALGESIC THERAPY
     Route: 048
     Dates: start: 20130902, end: 20131001

REACTIONS (1)
  - Hepatic enzyme increased [Recovering/Resolving]
